FAERS Safety Report 8942228 (Version 1)
Quarter: 2012Q4

REPORT INFORMATION
  Report Type: Spontaneous
  Country: US (occurrence: None)
  Receive Date: 20121129
  Receipt Date: 20121129
  Transmission Date: 20130627
  Serious: Yes (Hospitalization)
  Sender: FDA-Public Use
  Company Number: None

PATIENT
  Age: 64 Year
  Sex: Female
  Weight: 81 kg

DRUGS (12)
  1. WELLBUTRIN SR [Suspect]
     Indication: DEPRESSION
     Dates: start: 20120901, end: 20120908
  2. LEXAPRO [Suspect]
     Indication: ANXIETY DEPRESSION
     Dates: start: 20120901, end: 20120908
  3. FAMOTADINE [Concomitant]
  4. PROTONIX [Concomitant]
  5. PLAVIX [Concomitant]
  6. FUROSEMIDE [Concomitant]
  7. ISOSORBIDE [Concomitant]
  8. PLETAL [Concomitant]
  9. VYTORIN [Concomitant]
  10. METOPROLAM [Concomitant]
  11. SINGULAIR [Concomitant]
  12. ASPIRIN [Concomitant]

REACTIONS (3)
  - Serotonin syndrome [None]
  - Hyperthermia [None]
  - Sepsis [None]
